FAERS Safety Report 22111983 (Version 3)
Quarter: 2023Q2

REPORT INFORMATION
  Report Type: Spontaneous
  Country: US (occurrence: US)
  Receive Date: 20230318
  Receipt Date: 20230410
  Transmission Date: 20230722
  Serious: Yes (Other)
  Sender: FDA-Public Use
  Company Number: US-MLMSERVICE-20230302-4138718-2

PATIENT
  Age: 10 Year
  Sex: Male
  Weight: 33 kg

DRUGS (18)
  1. CARBOPLATIN [Suspect]
     Active Substance: CARBOPLATIN
     Indication: Metastases to bone
     Dosage: UNK
     Route: 065
  2. CARBOPLATIN [Suspect]
     Active Substance: CARBOPLATIN
     Indication: Neuroblastoma
  3. CYCLOPHOSPHAMIDE [Suspect]
     Active Substance: CYCLOPHOSPHAMIDE
     Indication: Metastases to bone
     Dosage: 75 MILLIGRAM/SQ. METER(DAYS 22-41)
     Route: 048
  4. CYCLOPHOSPHAMIDE [Suspect]
     Active Substance: CYCLOPHOSPHAMIDE
     Indication: Neuroblastoma recurrent
     Dosage: UNK
     Route: 065
     Dates: start: 2004, end: 2004
  5. ADRIAMYCIN [Suspect]
     Active Substance: DOXORUBICIN HYDROCHLORIDE
     Indication: Neuroblastoma
     Dosage: UNK
     Route: 065
  6. ADRIAMYCIN [Suspect]
     Active Substance: DOXORUBICIN HYDROCHLORIDE
     Indication: Metastases to bone
  7. CYTOXAN [Suspect]
     Active Substance: CYCLOPHOSPHAMIDE
     Indication: Neuroblastoma recurrent
     Dosage: 75 MILLIGRAM/SQ. METER (DAYS 22-41)
     Route: 065
     Dates: start: 2005
  8. CYTOXAN [Suspect]
     Active Substance: CYCLOPHOSPHAMIDE
     Indication: Metastases to bone
  9. ETOPOSIDE [Suspect]
     Active Substance: ETOPOSIDE
     Indication: Neuroblastoma recurrent
     Dosage: 50 MILLIGRAM/SQ. METER(DAYS 1-21)
     Route: 048
  10. ETOPOSIDE [Suspect]
     Active Substance: ETOPOSIDE
     Indication: Metastases to bone
  11. IFOSFAMIDE [Suspect]
     Active Substance: IFOSFAMIDE
     Indication: Neuroblastoma
  12. IFOSFAMIDE [Suspect]
     Active Substance: IFOSFAMIDE
     Indication: Metastases to bone
  13. TOPOTECAN [Suspect]
     Active Substance: TOPOTECAN HYDROCHLORIDE
     Indication: Neuroblastoma
     Dosage: UNK
     Route: 065
     Dates: start: 2004, end: 2004
  14. TOPOTECAN [Suspect]
     Active Substance: TOPOTECAN HYDROCHLORIDE
     Indication: Metastases to bone
  15. CELECOXIB [Concomitant]
     Active Substance: CELECOXIB
     Indication: Metastases to bone
     Dosage: 500 MILLIGRAM/SQ. METER, ONCE A DAY
     Route: 065
  16. CELECOXIB [Concomitant]
     Active Substance: CELECOXIB
     Indication: Neuroblastoma recurrent
  17. SULINDAC [Concomitant]
     Active Substance: SULINDAC
     Indication: Metastases to bone
     Dosage: 4 MILLIGRAM/KILOGRAM, ONCE A DAY(CONTINOUS)
     Route: 065
  18. SULINDAC [Concomitant]
     Active Substance: SULINDAC
     Indication: Neuroblastoma recurrent

REACTIONS (2)
  - Haematotoxicity [Recovered/Resolved]
  - Drug ineffective [Unknown]
